FAERS Safety Report 9918484 (Version 1)
Quarter: 2014Q1

REPORT INFORMATION
  Report Type: Spontaneous
  Country: US (occurrence: US)
  Receive Date: 20140224
  Receipt Date: 20140224
  Transmission Date: 20141002
  Serious: No
  Sender: FDA-Public Use
  Company Number: US-BIOGENIDEC-2014BI014241

PATIENT
  Age: 35 Year
  Sex: Male

DRUGS (6)
  1. TECFIDERA [Suspect]
     Indication: MULTIPLE SCLEROSIS
     Dates: start: 201307, end: 201401
  2. TECFIDERA [Suspect]
     Indication: MULTIPLE SCLEROSIS
     Route: 048
     Dates: start: 201402
  3. OMEPRAZOLE [Concomitant]
  4. VIT C [Concomitant]
  5. VIT D3 [Concomitant]
  6. MELATONIN [Concomitant]

REACTIONS (2)
  - Intentional drug misuse [Not Recovered/Not Resolved]
  - Flushing [Unknown]
